FAERS Safety Report 23822037 (Version 1)
Quarter: 2024Q2

REPORT INFORMATION
  Report Type: Spontaneous
  Country: CN (occurrence: CN)
  Receive Date: 20240506
  Receipt Date: 20240506
  Transmission Date: 20240715
  Serious: Yes (Hospitalization, Other)
  Sender: FDA-Public Use
  Company Number: CN-SUN PHARMACEUTICAL INDUSTRIES LTD-2024R1-444752

PATIENT
  Age: 14 Year
  Sex: Female
  Weight: 50 kg

DRUGS (2)
  1. QUETIAPINE [Suspect]
     Active Substance: QUETIAPINE
     Indication: Depression
     Dosage: UNK (20 TABLETS, 0.1 G/TABLET, 2 G)
     Route: 065
  2. VALPROIC ACID [Suspect]
     Active Substance: VALPROIC ACID
     Indication: Depression
     Dosage: UNK (120 TABLETS, 250 MG/TABLET 30 G)
     Route: 065

REACTIONS (5)
  - Toxicity to various agents [Unknown]
  - Intracranial pressure increased [Unknown]
  - Overdose [Unknown]
  - Loss of consciousness [Unknown]
  - Dyspnoea [Unknown]
